FAERS Safety Report 15787473 (Version 2)
Quarter: 2019Q1

REPORT INFORMATION
  Report Type: Spontaneous
  Country: ES (occurrence: ES)
  Receive Date: 20190103
  Receipt Date: 20190104
  Transmission Date: 20190417
  Serious: Yes (Other)
  Sender: FDA-Public Use
  Company Number: ES-PFIZER INC-2018534695

PATIENT
  Age: 23 Year
  Sex: Female

DRUGS (5)
  1. MEROPENEM. [Suspect]
     Active Substance: MEROPENEM
     Indication: SKIN INJURY
     Dosage: UNK, (MULTIPLES CYCLES)
  2. MOXIFLOXACIN. [Suspect]
     Active Substance: MOXIFLOXACIN
     Indication: SKIN INJURY
     Dosage: UNK, (MULTIPLES CYCLES)
  3. BEDAQUILINE [Suspect]
     Active Substance: BEDAQUILINE
     Indication: SKIN INJURY
     Dosage: UNK, (MULTIPLES CYCLES)
  4. AMIKACIN. [Suspect]
     Active Substance: AMIKACIN
     Indication: SKIN INJURY
     Dosage: UNK, (MULTIPLES CYCLES)
  5. TIGECYCLINE. [Suspect]
     Active Substance: TIGECYCLINE
     Indication: SKIN INJURY
     Dosage: UNK, (MULTIPLES CYCLES)

REACTIONS (2)
  - Deafness [Unknown]
  - Pancytopenia [Unknown]
